FAERS Safety Report 6376774-X (Version None)
Quarter: 2009Q3

REPORT INFORMATION
  Report Type: 
  Country: None (occurrence: None)
  Receive Date: 20090925
  Receipt Date: 20090916
  Transmission Date: 20100115
  Serious: Yes (Hospitalization)
  Sender: FDA-Public Use
  Company Number: IT-ASTRAZENECA-2009SE13781

PATIENT
  Age: 70 Year
  Sex: Female

DRUGS (4)
  1. SIMESTAT [Suspect]
     Route: 048
     Dates: start: 20090401, end: 20090623
  2. IDEOS [Concomitant]
  3. EUTIROX [Concomitant]
     Route: 048
  4. XANAX [Concomitant]

REACTIONS (4)
  - GLOMERULOSCLEROSIS [None]
  - KIDNEY FIBROSIS [None]
  - RENAL IMPAIRMENT [None]
  - RENAL TUBULAR ATROPHY [None]
